FAERS Safety Report 9421434 (Version 1)
Quarter: 2013Q3

REPORT INFORMATION
  Report Type: Spontaneous
  Country: DE (occurrence: DE)
  Receive Date: 20130726
  Receipt Date: 20130726
  Transmission Date: 20140515
  Serious: Yes (Other)
  Sender: FDA-Public Use
  Company Number: DE-PFIZER INC-2013213842

PATIENT
  Age: 91 Year
  Sex: Male

DRUGS (1)
  1. VIAGRA [Suspect]
     Dosage: 1-2 TIMES PER MONTH

REACTIONS (3)
  - Amyloidosis [Unknown]
  - Mantle cell lymphoma [Unknown]
  - Tongue disorder [Unknown]
